FAERS Safety Report 17039160 (Version 2)
Quarter: 2019Q4

REPORT INFORMATION
  Report Type: Other
  Country: PT (occurrence: PT)
  Receive Date: 20191115
  Receipt Date: 20191205
  Transmission Date: 20200122
  Serious: Yes (Other)
  Sender: FDA-Public Use
  Company Number: PT-ARBOR PHARMACEUTICALS, LLC-PT-2019ARB001580

PATIENT
  Age: 67 Year
  Sex: Female

DRUGS (1)
  1. EDARBYCLOR [Suspect]
     Active Substance: AZILSARTAN KAMEDOXOMIL\CHLORTHALIDONE
     Indication: HYPERTENSION
     Dosage: 52.5 MG, QD
     Route: 048
     Dates: start: 2018

REACTIONS (1)
  - Abdominal pain upper [Recovered/Resolved]

NARRATIVE: CASE EVENT DATE: 20190901
